FAERS Safety Report 11842951 (Version 1)
Quarter: 2015Q4

REPORT INFORMATION
  Report Type: Spontaneous
  Country: US (occurrence: US)
  Receive Date: 20151216
  Receipt Date: 20151216
  Transmission Date: 20160305
  Serious: Yes (Other)
  Sender: FDA-Public Use
  Company Number: US-PFIZER INC-2015444319

PATIENT
  Age: 53 Year
  Sex: Male
  Weight: 113 kg

DRUGS (3)
  1. CELEBREX [Suspect]
     Active Substance: CELECOXIB
     Indication: RHEUMATOID ARTHRITIS
     Dosage: UNK
     Route: 048
     Dates: start: 2014, end: 2014
  2. CELEBREX [Suspect]
     Active Substance: CELECOXIB
     Indication: NEUROPATHY PERIPHERAL
  3. TYLENOL [Concomitant]
     Active Substance: ACETAMINOPHEN
     Indication: ARTHRITIS
     Dosage: 625 MG TWO OR THREE TIMES A DAY

REACTIONS (2)
  - Cardiac failure congestive [Unknown]
  - Drug ineffective [Unknown]
